FAERS Safety Report 8017023-6 (Version None)
Quarter: 2012Q1

REPORT INFORMATION
  Report Type: 
  Country: None (occurrence: None)
  Receive Date: 20120102
  Receipt Date: 20111228
  Transmission Date: 20120608
  Serious: No
  Sender: FDA-Public Use
  Company Number: PHEH2011US009736

PATIENT
  Sex: Female

DRUGS (7)
  1. FLUCONAZOLE [Concomitant]
     Dosage: 200 MG
  2. NEXIUM [Concomitant]
     Dosage: 40 MG
  3. HYDROXYUREA [Concomitant]
     Dosage: 500 MG
  4. TASIGNA [Suspect]
     Indication: CHRONIC MYELOID LEUKAEMIA
     Dosage: 150 MG, BID
     Route: 048
     Dates: start: 20111022, end: 20111115
  5. FLECAINIDE ACETATE [Concomitant]
     Dosage: 50 MG
  6. VERAPAMIL [Concomitant]
  7. ACYCLOVIR [Concomitant]
     Dosage: 400 MG

REACTIONS (1)
  - DRUG INEFFECTIVE [None]
